FAERS Safety Report 22304229 (Version 1)
Quarter: 2023Q2

REPORT INFORMATION
  Report Type: Spontaneous
  Country: US (occurrence: None)
  Receive Date: 20230509
  Receipt Date: 20230509
  Transmission Date: 20230721
  Serious: Yes (Death)
  Sender: FDA-Public Use
  Company Number: None

PATIENT
  Sex: Female

DRUGS (2)
  1. CAPECITABINE [Suspect]
     Active Substance: CAPECITABINE
     Indication: Breast cancer female
     Dates: start: 20230407, end: 20230509
  2. TUKYSA [Concomitant]
     Active Substance: TUCATINIB
     Dates: start: 20230407, end: 20230509

REACTIONS (1)
  - Death [None]
